FAERS Safety Report 6224291-X (Version None)
Quarter: 2009Q2

REPORT INFORMATION
  Report Type: 
  Country: None (occurrence: None)
  Receive Date: 20090612
  Receipt Date: 20090313
  Transmission Date: 20091009
  Serious: No
  Sender: FDA-Public Use
  Company Number: US-ABBOTT-09P-163-0562748-00

PATIENT
  Sex: Male
  Weight: 103.97 kg

DRUGS (19)
  1. HUMIRA [Suspect]
     Indication: CROHN'S DISEASE
     Route: 058
     Dates: start: 20071228
  2. METFORMIN HYDROCHLORIDE [Concomitant]
     Indication: DIABETES MELLITUS
     Route: 048
  3. REGULAR INSULIN [Concomitant]
     Indication: DIABETES MELLITUS
  4. LISINOPRIL [Concomitant]
     Indication: HYPERTENSION
     Route: 048
  5. FLOMAX [Concomitant]
     Indication: BENIGN PROSTATIC HYPERPLASIA
     Route: 048
  6. COLAZAL [Concomitant]
     Indication: CROHN'S DISEASE
     Route: 048
  7. SIMVASTATIN [Concomitant]
     Indication: BLOOD CHOLESTEROL INCREASED
     Route: 048
  8. TOPROL-XL [Concomitant]
     Indication: HYPERTENSION
     Route: 048
  9. ZETIA [Concomitant]
     Indication: HYPERTENSION
     Route: 048
  10. PLAVIX [Concomitant]
     Indication: CARDIAC DISORDER
     Route: 048
  11. ASPIRIN [Concomitant]
     Indication: CARDIAC DISORDER
     Route: 048
  12. ALLOPURINOL [Concomitant]
     Indication: DRUG USE FOR UNKNOWN INDICATION
     Route: 048
  13. TRAZODONE HCL [Concomitant]
     Indication: INSOMNIA
     Route: 048
  14. TRAZODONE HCL [Concomitant]
     Indication: DIABETIC NEUROPATHY
  15. DISOPYRAMIDE [Concomitant]
     Indication: DRUG USE FOR UNKNOWN INDICATION
     Route: 048
  16. GLIMEPIRIDE [Concomitant]
     Indication: DIABETES MELLITUS
     Route: 048
  17. XANAX [Concomitant]
     Indication: NEUROPATHY PERIPHERAL
     Dosage: QHS, PT ABLE TO TAKE PRN UP TO TID
     Route: 048
  18. PERCOCET [Concomitant]
     Indication: NEUROPATHY PERIPHERAL
     Dosage: 325/5 PRN
     Route: 048
  19. PERCOCET [Concomitant]
     Indication: ARTHRALGIA

REACTIONS (6)
  - CROHN'S DISEASE [None]
  - ERYTHEMA NODOSUM [None]
  - JOINT SWELLING [None]
  - PAIN [None]
  - RASH MACULAR [None]
  - TRIGGER FINGER [None]
